FAERS Safety Report 16012711 (Version 2)
Quarter: 2019Q2

REPORT INFORMATION
  Report Type: Spontaneous
  Country: GB (occurrence: GB)
  Receive Date: 20190227
  Receipt Date: 20190423
  Transmission Date: 20190711
  Serious: Yes (Other)
  Sender: FDA-Public Use
  Company Number: GB-PERRIGO-19GB002532

PATIENT
  Age: 60 Year
  Sex: Male
  Weight: 79 kg

DRUGS (4)
  1. FLUOXETINE [Interacting]
     Active Substance: FLUOXETINE HYDROCHLORIDE
     Indication: ANXIETY
     Dosage: 20 MILLIGRAM DAILY;
     Dates: start: 201008
  2. AVAMYS [Concomitant]
     Active Substance: FLUTICASONE FUROATE
     Indication: PRODUCT USED FOR UNKNOWN INDICATION
  3. LORATADINE. [Suspect]
     Active Substance: LORATADINE
     Indication: PRODUCT USED FOR UNKNOWN INDICATION
  4. AVAMYS [Concomitant]
     Active Substance: FLUTICASONE FUROATE

REACTIONS (2)
  - Drug interaction [Not Recovered/Not Resolved]
  - Convulsions local [Unknown]

NARRATIVE: CASE EVENT DATE: 201902
